FAERS Safety Report 18189922 (Version 1)
Quarter: 2020Q3

REPORT INFORMATION
  Report Type: Spontaneous
  Country: FR (occurrence: FR)
  Receive Date: 20200825
  Receipt Date: 20200825
  Transmission Date: 20201103
  Serious: Yes (Life-Threatening)
  Sender: FDA-Public Use
  Company Number: FR-ACCORD-196686

PATIENT
  Age: 62 Year
  Sex: Male
  Weight: 66 kg

DRUGS (11)
  1. KARDEGIC [Concomitant]
     Active Substance: ASPIRIN DL-LYSINE
  2. PARACETAMOL [Concomitant]
     Active Substance: ACETAMINOPHEN
  3. PREGABALIN. [Concomitant]
     Active Substance: PREGABALIN
  4. AVASTIN [Suspect]
     Active Substance: BEVACIZUMAB
     Indication: LUNG ADENOCARCINOMA
     Route: 042
     Dates: start: 20200409, end: 20200716
  5. PACLITAXEL AHCL [Suspect]
     Active Substance: PACLITAXEL
     Indication: LUNG ADENOCARCINOMA
     Route: 042
     Dates: start: 20200430, end: 20200716
  6. PREDNISOLONE. [Concomitant]
     Active Substance: PREDNISOLONE
  7. OMEPRAZOLE. [Concomitant]
     Active Substance: OMEPRAZOLE
  8. HYDROCORTISONE. [Concomitant]
     Active Substance: HYDROCORTISONE
  9. FUNGIZON [Concomitant]
  10. XGEVA [Concomitant]
     Active Substance: DENOSUMAB
  11. TRAMADOL. [Concomitant]
     Active Substance: TRAMADOL

REACTIONS (3)
  - Oxygen saturation decreased [Recovered/Resolved]
  - Tracheal fistula [Not Recovered/Not Resolved]
  - Dyspnoea [Recovered/Resolved]

NARRATIVE: CASE EVENT DATE: 20200720
